FAERS Safety Report 9068340 (Version 1)
Quarter: 2013Q1

REPORT INFORMATION
  Report Type: Spontaneous
  Country: US (occurrence: None)
  Receive Date: 20130212
  Receipt Date: 20130212
  Transmission Date: 20140127
  Serious: Yes (Other)
  Sender: FDA-Public Use
  Company Number: None

PATIENT
  Age: 75 Year
  Sex: Female
  Weight: 70.31 kg

DRUGS (4)
  1. CHLORASEPTIC SORE THROAT [Suspect]
     Indication: OROPHARYNGEAL PAIN
     Dosage: 1 SPRAY ONCE EVERY 2 HOURS BUCCAL
     Route: 002
     Dates: start: 20130203, end: 20130203
  2. CHLORASEPTIC SORE THROAT [Suspect]
     Dosage: 1 SPRAY ONCE EVERY 2 HOURS BUCCAL
     Route: 002
     Dates: start: 20130203, end: 20130203
  3. CHLORASEPTIC SORE THROAT [Suspect]
     Indication: RHINORRHOEA
     Dosage: 1 SPRAY ONCE EVERY 2 HOURS BUCCAL
     Route: 002
     Dates: start: 20130203, end: 20130203
  4. CHLORASEPTIC SORE THROAT [Suspect]
     Indication: COUGH
     Dosage: 1 SPRAY ONCE EVERY 2 HOURS BUCCAL
     Route: 002
     Dates: start: 20130203, end: 20130203

REACTIONS (3)
  - Swollen tongue [None]
  - Dyspnoea [None]
  - Wrong technique in drug usage process [None]
